FAERS Safety Report 8773529 (Version 1)
Quarter: 2012Q4

REPORT INFORMATION
  Report Type: 
  Country: US (occurrence: US)
  Receive Date: 20120907
  Receipt Date: 20120907
  Transmission Date: 20130627
  Serious: Yes (Congenital Anomaly)
  Sender: FDA-Public Use
  Company Number: US-GLAXOSMITHKLINE-A0992422A

PATIENT
  Age: 0 Year
  Sex: Male

DRUGS (12)
  1. PAXIL CR [Suspect]
     Indication: PRODUCT USED FOR UNKNOWN INDICATION
     Route: 064
  2. PAXIL [Suspect]
     Indication: PRODUCT USED FOR UNKNOWN INDICATION
     Route: 064
  3. MOTRIN [Concomitant]
     Route: 064
  4. ULTRAM [Concomitant]
     Route: 064
  5. ALLEGRA D [Concomitant]
     Route: 064
  6. ZOLOFT [Concomitant]
     Route: 064
  7. FLEXERIL [Concomitant]
     Route: 064
  8. DARVOCET [Concomitant]
     Route: 064
  9. SEREVENT [Concomitant]
     Route: 064
  10. ATROVENT [Concomitant]
     Route: 064
  11. ALBUTEROL [Concomitant]
     Route: 064
  12. IMITREX [Concomitant]
     Route: 064

REACTIONS (4)
  - Ventricular septal defect [Unknown]
  - Tricuspid valve incompetence [Unknown]
  - Atrial septal defect [Unknown]
  - Foetal exposure during pregnancy [Unknown]
